FAERS Safety Report 6694248-3 (Version None)
Quarter: 2010Q2

REPORT INFORMATION
  Report Type: 
  Country: None (occurrence: None)
  Receive Date: 20100421
  Receipt Date: 20100415
  Transmission Date: 20101027
  Serious: Yes (Hospitalization)
  Sender: FDA-Public Use
  Company Number: A0855172A

PATIENT
  Age: 42 Year
  Sex: Female

DRUGS (5)
  1. ASPIRIN + CAFFEINE + PARACETAMOL (GOODY EXTRA) [Suspect]
     Indication: BRAIN OEDEMA
     Dosage: UNK / SEE DOSAGE TEXT / ORAL
     Route: 048
     Dates: end: 20090901
  2. PREGABALIN [Concomitant]
  3. CARBAMAZEPINE [Concomitant]
  4. CARBAMAZEPINE [Concomitant]
  5. HYDROCODONE BITARTRATE [Concomitant]

REACTIONS (19)
  - ABDOMINAL PAIN UPPER [None]
  - ABDOMINAL WOUND DEHISCENCE [None]
  - DRUG DEPENDENCE [None]
  - GASTRIC DILATATION [None]
  - GASTRIC PERFORATION [None]
  - GASTRIC ULCER [None]
  - GASTROINTESTINAL INFECTION [None]
  - HAEMORRHAGE [None]
  - HYSTERECTOMY [None]
  - LIVER INJURY [None]
  - MOUTH HAEMORRHAGE [None]
  - NECROSIS [None]
  - OBSTRUCTION GASTRIC [None]
  - POSTOPERATIVE HERNIA [None]
  - PULMONARY THROMBOSIS [None]
  - RECTAL HAEMORRHAGE [None]
  - RESPIRATORY FAILURE [None]
  - SKIN GRAFT [None]
  - SUTURE RUPTURE [None]
